FAERS Safety Report 9878688 (Version 2)
Quarter: 2014Q1

REPORT INFORMATION
  Report Type: Spontaneous
  Country: PK (occurrence: PK)
  Receive Date: 20140206
  Receipt Date: 20140220
  Transmission Date: 20141002
  Serious: Yes (Death, Hospitalization)
  Sender: FDA-Public Use
  Company Number: PK-PFIZER INC-2014032642

PATIENT
  Sex: 0

DRUGS (1)
  1. SUTENT [Suspect]
     Indication: RENAL CELL CARCINOMA
     Dosage: 25 MG, 1X/DAY
     Route: 048

REACTIONS (1)
  - Cardiopulmonary failure [Fatal]
